FAERS Safety Report 8718808 (Version 2)
Quarter: 2013Q3

REPORT INFORMATION
  Report Type: Spontaneous
  Country: CA (occurrence: None)
  Receive Date: 20120726
  Receipt Date: 20130731
  Transmission Date: 20140515
  Serious: Yes (Disabling, Other)
  Sender: FDA-Public Use
  Company Number: 2012000183

PATIENT
  Age: 54 Year
  Sex: Female

DRUGS (10)
  1. ACEON [Suspect]
     Indication: PRODUCT USED FOR UNKNOWN INDICATION
     Dosage: 2 MG, ORAL
     Route: 048
     Dates: start: 2010, end: 2011
  2. AMLODIPINE [Suspect]
     Indication: PRODUCT USED FOR UNKNOWN INDICATION
     Dosage: 5 MG, QD, ORAL
     Route: 048
  3. DIOVAN [Suspect]
     Indication: PRODUCT USED FOR UNKNOWN INDICATION
     Dosage: 2 MG, ORAL
     Route: 048
     Dates: end: 2011
  4. HYDROCHLOROTHIAZIDE (HYDROCHLOROTHIAZIDE) [Suspect]
     Indication: PRODUCT USED FOR UNKNOWN INDICATION
     Dosage: ORAL
     Route: 048
  5. LISINOPRIL AND HYDROCHLOROTHIAZIDE [Suspect]
     Indication: PRODUCT USED FOR UNKNOWN INDICATION
     Dosage: ORAL
     Route: 048
  6. CLONAZEPAM [Concomitant]
  7. HISTANTIL (PROMETHAZINE HYDROCHLORIDE) [Concomitant]
  8. LYRICA [Concomitant]
  9. NOVO-CYCLOPRINE (CYCLOBENZAPRINE HYDROCHLORIDE) [Concomitant]
  10. EMTEC (CODEINE PHOSPHATE, PARACETAMOL) [Concomitant]

REACTIONS (10)
  - Eye disorder [None]
  - Fatigue [None]
  - Feeling hot [None]
  - Gait disturbance [None]
  - Gastrointestinal pain [None]
  - Mood altered [None]
  - Oedema peripheral [None]
  - Oral fungal infection [None]
  - Tongue ulceration [None]
  - Dizziness [None]
